FAERS Safety Report 7543960-2 (Version None)
Quarter: 2011Q2

REPORT INFORMATION
  Report Type: 
  Country: None (occurrence: None)
  Receive Date: 20110613
  Receipt Date: 20040915
  Transmission Date: 20111010
  Serious: Yes (Hospitalization)
  Sender: FDA-Public Use
  Company Number: PHHO2004CO12570

PATIENT
  Sex: Male

DRUGS (3)
  1. ANDROCUR [Concomitant]
     Dates: start: 20040628
  2. ZOMETA [Suspect]
     Indication: METASTASES TO BONE
     Dosage: 4 MG, UNK
     Dates: start: 20040709
  3. RADIOTHERAPY [Concomitant]
     Dates: start: 20040727

REACTIONS (9)
  - AGGRESSION [None]
  - DRY MOUTH [None]
  - DIABETES MELLITUS [None]
  - RESTLESSNESS [None]
  - POLYDIPSIA [None]
  - URINARY TRACT INFECTION [None]
  - DIABETIC KETOACIDOSIS [None]
  - HYPERGLYCAEMIA [None]
  - URETHRAL OBSTRUCTION [None]
